FAERS Safety Report 21761377 (Version 1)
Quarter: 2022Q4

REPORT INFORMATION
  Report Type: Spontaneous
  Country: DE (occurrence: DE)
  Receive Date: 20221221
  Receipt Date: 20221221
  Transmission Date: 20230113
  Serious: Yes (Congenital Anomaly)
  Sender: FDA-Public Use
  Company Number: DE-EMBRYOTOX-202120718

PATIENT
  Age: 1 Day
  Sex: Male
  Weight: 3.81 kg

DRUGS (5)
  1. METOPROLOL [Suspect]
     Active Substance: METOPROLOL
     Indication: Migraine prophylaxis
     Dosage: 25 [MG/D ], DURATION : 283 DAYS, ADDITIONAL INFORMATION : 0. - 40.3. GESTATIONAL WEEK
     Route: 065
     Dates: start: 20210703, end: 20220412
  2. LEVOTHYROXINE SODIUM [Concomitant]
     Active Substance: LEVOTHYROXINE SODIUM
     Indication: Autoimmune thyroiditis
     Dosage: 75 [UG/D ]
     Dates: start: 20210703, end: 20220412
  3. Comirnaty monovalent (BioNTech/Pfizer) [Concomitant]
     Indication: COVID-19 immunisation
     Dosage: 30 [UG/D ]
     Dates: start: 20211211, end: 20211211
  4. Comirnaty monovalent (BioNTech/Pfizer) [Concomitant]
     Indication: COVID-19 immunisation
     Dosage: 30 [UG/D ]/ 2ND VACCINATION
     Dates: start: 20210720, end: 20210720
  5. VAXIGRIPTETRA [Concomitant]
     Active Substance: INFLUENZA VIRUS VACCINE QUADRIVALENT TYPE A+B
     Indication: Immunisation
     Dates: start: 20211111, end: 20211111

REACTIONS (4)
  - Cardiac septal hypertrophy [Recovered/Resolved]
  - Atrial septal defect [Unknown]
  - Infantile apnoea [Recovered/Resolved]
  - Foetal exposure during pregnancy [Unknown]

NARRATIVE: CASE EVENT DATE: 20220401
